FAERS Safety Report 7706220-2 (Version None)
Quarter: 2011Q3

REPORT INFORMATION
  Report Type: 
  Country: None (occurrence: None)
  Receive Date: 20110824
  Receipt Date: 20110817
  Transmission Date: 20111222
  Serious: Yes (Hospitalization)
  Sender: FDA-Public Use
  Company Number: DE-ROCHE-484507

PATIENT
  Sex: Female
  Weight: 79 kg

DRUGS (11)
  1. CAPECITABINE [Suspect]
     Indication: BREAST CANCER METASTATIC
     Dosage: EVERY 21 DAYS.
     Route: 048
     Dates: start: 20061106, end: 20070125
  2. DOXEPIN HCL [Concomitant]
     Dosage: FREQUENCY REPORTED AS 1.
     Route: 048
     Dates: start: 20061227
  3. CYCLOPHOSPHAMIDE [Suspect]
     Indication: BREAST CANCER METASTATIC
     Route: 042
     Dates: start: 20060911, end: 20061023
  4. NEULASTA [Concomitant]
     Dosage: FREQUENCY REPORTED AS 1.
     Route: 058
     Dates: start: 20060912, end: 20061024
  5. PANTOPRAZOLE [Concomitant]
     Dosage: FREQUENCY REPORTED AS 1.
     Route: 048
     Dates: start: 20061227
  6. PACLITAXEL [Suspect]
     Indication: BREAST CANCER METASTATIC
     Route: 042
     Dates: start: 20061106, end: 20070112
  7. METOPROLOL SUCCINATE [Concomitant]
     Dosage: FREQUENCY REPORTED AS 1.
     Route: 048
     Dates: start: 20061227
  8. EPIRUBICIN [Suspect]
     Indication: BREAST CANCER METASTATIC
     Route: 042
     Dates: start: 20060911, end: 20061023
  9. PARASIN [Concomitant]
     Dosage: FREQUENCY REPORTED AS 1.
     Route: 048
     Dates: end: 20070301
  10. EPOETIN BETA [Suspect]
     Dosage: FREQUENCY REPORTED AS 1.
     Route: 058
     Dates: start: 20060911, end: 20061024
  11. DIGITOXIN TAB [Concomitant]
     Dosage: FREQUENCY REPORTED AS 1.
     Route: 048
     Dates: start: 20061227

REACTIONS (1)
  - GENERAL PHYSICAL HEALTH DETERIORATION [None]
